FAERS Safety Report 26093070 (Version 1)
Quarter: 2025Q4

REPORT INFORMATION
  Report Type: Spontaneous
  Country: US (occurrence: None)
  Receive Date: 20251126
  Receipt Date: 20251126
  Transmission Date: 20260118
  Serious: Yes (Other)
  Sender: FDA-CTU
  Company Number: None

PATIENT
  Age: 58 Year
  Sex: Female
  Weight: 124.3 kg

DRUGS (1)
  1. AJOVY [Suspect]
     Active Substance: FREMANEZUMAB-VFRM
     Indication: Migraine
     Dosage: OTHER FREQUENCY : EVERY 30 DAYS;?
     Route: 058

REACTIONS (3)
  - Injection site swelling [None]
  - Injection site pruritus [None]
  - Injection site pain [None]

NARRATIVE: CASE EVENT DATE: 20251030
